FAERS Safety Report 10291017 (Version 1)
Quarter: 2014Q3

REPORT INFORMATION
  Report Type: Spontaneous
  Country: DE (occurrence: DE)
  Receive Date: 20140710
  Receipt Date: 20140710
  Transmission Date: 20150326
  Serious: Yes (Congenital Anomaly, Other)
  Sender: FDA-Public Use
  Company Number: DE-WATSON-2014-15369

PATIENT
  Age: 36 Year
  Sex: Female

DRUGS (3)
  1. RAMIPRIL (UNKNOWN) [Suspect]
     Active Substance: RAMIPRIL
     Indication: HYPERTENSION
     Route: 048
  2. HYDROCHLOROTHIAZIDE (UNKNOWN) [Suspect]
     Active Substance: HYDROCHLOROTHIAZIDE
     Indication: HYPERTENSION
     Route: 048
  3. VALDOXAN [Suspect]
     Active Substance: AGOMELATINE
     Indication: ANXIETY DISORDER
     Dosage: 25 MG, DAILY
     Route: 048
     Dates: start: 20130522, end: 20140123

REACTIONS (1)
  - Gestational diabetes [Unknown]
